FAERS Safety Report 12906642 (Version 1)
Quarter: 2016Q4

REPORT INFORMATION
  Report Type: Spontaneous
  Country: US (occurrence: US)
  Receive Date: 20161101
  Receipt Date: 20161101
  Transmission Date: 20170207
  Serious: Yes (Other)
  Sender: FDA-Public Use
  Company Number: None

PATIENT
  Age: 3 Year
  Sex: Female
  Weight: 13.5 kg

DRUGS (6)
  1. ELDERBERRY [Concomitant]
     Active Substance: HERBALS
  2. BABY TEETHING (HYLAND HOMEOPATHIC) [Suspect]
     Active Substance: HOMEOPATHICS
     Indication: TEETHING
     Dosage: ?          QUANTITY:1 TABLET(S);?
     Route: 048
  3. VITAMINS [Concomitant]
     Active Substance: VITAMINS
  4. PROBIOTIC [Concomitant]
     Active Substance: PROBIOTICS NOS
  5. ALLERGY PILL(SEASONAL) [Concomitant]
  6. ZAROTIN [Concomitant]

REACTIONS (3)
  - Seizure [None]
  - Petit mal epilepsy [None]
  - Product use issue [None]

NARRATIVE: CASE EVENT DATE: 20160104
